FAERS Safety Report 10504899 (Version 1)
Quarter: 2014Q3

REPORT INFORMATION
  Report Type: Spontaneous
  Country: US (occurrence: None)
  Receive Date: 20140929
  Receipt Date: 20140929
  Transmission Date: 20150326
  Serious: Yes (Other)
  Sender: FDA-Public Use
  Company Number: US-2014-11354

PATIENT
  Sex: Male

DRUGS (3)
  1. ABILIFY MAINTENA [Suspect]
     Active Substance: ARIPIPRAZOLE
     Indication: SCHIZOPHRENIA
     Dosage: DEPOT
     Route: 030
     Dates: start: 201404
  2. ABILIFY [Concomitant]
     Active Substance: ARIPIPRAZOLE
  3. RISPERDAL CONSTA [Concomitant]
     Active Substance: RISPERIDONE

REACTIONS (3)
  - Psychiatric symptom [None]
  - Hallucination [None]
  - Drug administration error [None]

NARRATIVE: CASE EVENT DATE: 2014
